FAERS Safety Report 5381238-6 (Version None)
Quarter: 2007Q3

REPORT INFORMATION
  Report Type: 
  Country: None (occurrence: None)
  Receive Date: 20070706
  Receipt Date: 20070628
  Transmission Date: 20080115
  Serious: Yes (Hospitalization, Other)
  Sender: FDA-Public Use
  Company Number: US-PFIZER INC-2007053715

PATIENT
  Sex: Male

DRUGS (2)
  1. CELEBREX [Suspect]
     Route: 048
  2. BEXTRA [Suspect]
     Route: 048
     Dates: start: 20040630, end: 20040715

REACTIONS (1)
  - CEREBROVASCULAR ACCIDENT [None]
